FAERS Safety Report 5937653-2 (Version None)
Quarter: 2008Q4

REPORT INFORMATION
  Report Type: 
  Country: None (occurrence: None)
  Receive Date: 20081031
  Receipt Date: 20081021
  Transmission Date: 20090506
  Serious: Yes (Hospitalization)
  Sender: FDA-Public Use
  Company Number: DE-ABBOTT-08P-062-0483420-00

PATIENT
  Age: 75 Year
  Sex: Male

DRUGS (6)
  1. HUMIRA [Suspect]
     Indication: RHEUMATOID ARTHRITIS
     Route: 058
     Dates: start: 20080101, end: 20080101
  2. HUMIRA [Suspect]
     Dates: start: 20080101
  3. PREDNISOLONE [Concomitant]
     Indication: RHEUMATOID ARTHRITIS
     Route: 048
  4. METHOTREXATE [Concomitant]
     Indication: RHEUMATOID ARTHRITIS
     Dates: start: 20070301, end: 20080801
  5. METHOTREXATE [Concomitant]
     Dates: start: 20080101
  6. COX-2 INHIBITOR [Concomitant]
     Indication: RHEUMATOID ARTHRITIS

REACTIONS (4)
  - ILEUS [None]
  - LISTERIOSIS [None]
  - MEGACOLON [None]
  - PERITONITIS [None]
